FAERS Safety Report 8070380-7 (Version None)
Quarter: 2012Q1

REPORT INFORMATION
  Report Type: 
  Country: None (occurrence: None)
  Receive Date: 20120125
  Receipt Date: 20120120
  Transmission Date: 20120608
  Serious: Yes (Other)
  Sender: FDA-Public Use
  Company Number: US-B.I. PHARMACEUTICALS,INC./RIDGEFIELD-2012-BP-01218BP

PATIENT
  Age: 75 Year
  Sex: Female

DRUGS (2)
  1. VITAMIN TAB [Concomitant]
     Indication: SUPPLEMENTATION THERAPY
  2. PRADAXA [Suspect]
     Indication: ATRIAL FIBRILLATION
     Dosage: 150 MG
     Route: 048
     Dates: start: 20111222

REACTIONS (3)
  - TINNITUS [None]
  - HEADACHE [None]
  - BLOOD PRESSURE INCREASED [None]
